FAERS Safety Report 24216164 (Version 1)
Quarter: 2024Q3

REPORT INFORMATION
  Report Type: Report from Study
  Country: US (occurrence: US)
  Receive Date: 20240816
  Receipt Date: 20240816
  Transmission Date: 20241016
  Serious: Yes (Death, Other)
  Sender: GLAXOSMITHKLINE
  Company Number: US-GLAXOSMITHKLINE-US2019GSK177552

PATIENT

DRUGS (7)
  1. BELIMUMAB [Suspect]
     Active Substance: BELIMUMAB
     Indication: Systemic lupus erythematosus
     Dosage: UNK
     Dates: start: 20151118
  2. METHOTREXATE [Concomitant]
     Active Substance: METHOTREXATE
     Indication: Systemic lupus erythematosus
     Dosage: 25 MG, QWK
     Route: 048
     Dates: start: 20141203
  3. HYDROXYCHLOROQUINE [Concomitant]
     Active Substance: HYDROXYCHLOROQUINE
     Indication: Systemic lupus erythematosus
     Dosage: 400 MG, QD
     Route: 048
     Dates: start: 20140610
  4. CHLOROQUINE [Concomitant]
     Active Substance: CHLOROQUINE
     Indication: Product used for unknown indication
     Dosage: UNK
     Dates: start: 20140610
  5. QUINACRINE [Concomitant]
     Active Substance: QUINACRINE
     Indication: Product used for unknown indication
     Dosage: UNK
     Dates: start: 20140610
  6. COCAINE [Concomitant]
     Active Substance: COCAINE
     Indication: Product used for unknown indication
  7. UNSPECIFIED INGREDIENT [Concomitant]
     Active Substance: UNSPECIFIED INGREDIENT
     Indication: Product used for unknown indication

REACTIONS (1)
  - Brain injury [Fatal]

NARRATIVE: CASE EVENT DATE: 20190419
